FAERS Safety Report 4987033-1 (Version None)
Quarter: 2006Q2

REPORT INFORMATION
  Report Type: 
  Country: None (occurrence: None)
  Receive Date: 20060501
  Receipt Date: 20060407
  Transmission Date: 20061013
  Serious: Yes (Hospitalization)
  Sender: FDA-Public Use
  Company Number: PHBS2006JP05493

PATIENT
  Age: 50 Year
  Sex: Female

DRUGS (5)
  1. VOLTAREN [Suspect]
     Indication: ARTHRALGIA
     Dosage: UNK, UNK
     Route: 048
     Dates: start: 20010815
  2. LOXONIN [Suspect]
     Indication: MYALGIA
  3. PREDNISOLONE [Concomitant]
     Dosage: 40 GM/DAY
     Dates: start: 20010929
  4. PREDNISOLONE [Concomitant]
     Dosage: 25 MG/DAY
  5. CEFCAPENE PIVOXIL HYDROCHLORIDE [Concomitant]

REACTIONS (15)
  - ALVEOLITIS [None]
  - ANAEMIA [None]
  - BLOOD URINE PRESENT [None]
  - C-REACTIVE PROTEIN INCREASED [None]
  - COUGH [None]
  - EOSINOPHILIC PNEUMONIA [None]
  - ERYTHEMA [None]
  - JUVENILE ARTHRITIS [None]
  - LIVER DISORDER [None]
  - LUNG INFILTRATION [None]
  - MYALGIA [None]
  - PYREXIA [None]
  - RASH PAPULAR [None]
  - RED BLOOD CELL SEDIMENTATION RATE INCREASED [None]
  - WHITE BLOOD CELL COUNT INCREASED [None]
